FAERS Safety Report 5615124-0 (Version None)
Quarter: 2008Q1

REPORT INFORMATION
  Report Type: 
  Country: None (occurrence: None)
  Receive Date: 20080206
  Receipt Date: 20070702
  Transmission Date: 20080703
  Serious: Yes (Life-Threatening, Hospitalization, Other)
  Sender: FDA-Public Use
  Company Number: A0655903A

PATIENT

DRUGS (2)
  1. ARIXTRA [Suspect]
     Dosage: 2.5MG PER DAY
     Route: 058
     Dates: start: 20070501
  2. UNKNOWN [Concomitant]

REACTIONS (3)
  - DEEP VEIN THROMBOSIS [None]
  - INCORRECT DOSE ADMINISTERED [None]
  - PULMONARY EMBOLISM [None]
